FAERS Safety Report 8606917-6 (Version None)
Quarter: 2012Q3

REPORT INFORMATION
  Report Type: 
  Country: None (occurrence: None)
  Receive Date: 20120820
  Receipt Date: 20120809
  Transmission Date: 20120928
  Serious: Yes (Death, Hospitalization, Other)
  Sender: FDA-Public Use
  Company Number: PH-BAXTER-2012BAX009127

PATIENT
  Sex: Female

DRUGS (7)
  1. DIANEAL PD-2 W/ DEXTROSE 4.25% [Suspect]
     Route: 033
     Dates: start: 20120227, end: 20120727
  2. DIANEAL PD-2 W/ DEXTROSE 1.5% [Suspect]
     Route: 033
     Dates: start: 20120227, end: 20120727
  3. FERROUS SULFATE TAB [Concomitant]
     Route: 065
  4. SODIUM BICARBONATE [Concomitant]
     Route: 065
  5. EPOGEN [Concomitant]
     Route: 065
  6. FOLIC ACID [Concomitant]
     Route: 065
  7. CALCIUM CARBONATE [Concomitant]
     Route: 065

REACTIONS (6)
  - PERITONEAL ADHESIONS [None]
  - CARDIO-RESPIRATORY ARREST [None]
  - CHEST PAIN [None]
  - PERITONITIS [None]
  - DYSPNOEA [None]
  - PERITONEAL DIALYSIS COMPLICATION [None]
